FAERS Safety Report 6529004-X (Version None)
Quarter: 2009Q4

REPORT INFORMATION
  Report Type: 
  Country: None (occurrence: None)
  Receive Date: 20091230
  Receipt Date: 20091112
  Transmission Date: 20100525
  Serious: Yes (Hospitalization, Other)
  Sender: FDA-Public Use
  Company Number: 2009AP004549

PATIENT
  Age: 79 Year
  Sex: Male

DRUGS (16)
  1. HYDROCHLOROTHIAZIDE [Suspect]
  2. SOTALOL HCL [Suspect]
  3. NORTRIPTYLINE HCL [Suspect]
  4. POLYETHYLENE GLYCOL [Suspect]
     Indication: COLONOSCOPY
     Dosage: 4 L; UNKNOWN
  5. LEVOTHYROXINE SODIUM [Concomitant]
  6. TOLTERODINE TARTRATE [Concomitant]
  7. FERROUS GLUCONATE (FERROUS GLUCONATE) [Concomitant]
  8. CARBIDOPA (CARBIDOPA) [Concomitant]
  9. LEVODOPA (LEVODOPA) [Concomitant]
  10. ACETAMINOPHEN [Concomitant]
  11. OMEPRAZOLE [Concomitant]
  12. TIOTROPIUM (TIOTROPIUM) [Concomitant]
  13. CLOPIDOGREL [Concomitant]
  14. ATORVASTATIN CALCIUM [Concomitant]
  15. CILAZAPRIL (CILAZAPRIL) [Concomitant]
  16. BUDESONIDE [Concomitant]

REACTIONS (9)
  - ARRHYTHMIA [None]
  - DEVICE MALFUNCTION [None]
  - HAEMORRHOIDS [None]
  - HYPOKALAEMIA [None]
  - HYPOMAGNESAEMIA [None]
  - IRON DEFICIENCY ANAEMIA [None]
  - RECTAL HAEMORRHAGE [None]
  - VENTRICULAR TACHYCARDIA [None]
  - WEIGHT DECREASED [None]
